FAERS Safety Report 4651724-2 (Version None)
Quarter: 2005Q2

REPORT INFORMATION
  Report Type: 
  Country: None (occurrence: None)
  Receive Date: 20050404
  Receipt Date: 20041122
  Transmission Date: 20051028
  Serious: No
  Sender: FDA-Public Use
  Company Number: USA041184360

PATIENT
  Age: 41 Year
  Sex: Female

DRUGS (3)
  1. CYMBALTA [Suspect]
     Indication: FIBROMYALGIA
     Dosage: 30 MG DAY
     Dates: start: 20041114
  2. ACETAMINOPHEN [Concomitant]
  3. SKELAXIN [Concomitant]

REACTIONS (4)
  - ABDOMINAL DISTENSION [None]
  - DECREASED APPETITE [None]
  - DRY MOUTH [None]
  - NAUSEA [None]
